FAERS Safety Report 4789595-6 (Version None)
Quarter: 2005Q3

REPORT INFORMATION
  Report Type: 
  Country: None (occurrence: None)
  Receive Date: 20050914
  Receipt Date: 20041216
  Transmission Date: 20060218
  Serious: Yes (Hospitalization, Other)
  Sender: FDA-Public Use
  Company Number: 163-20785-04120476

PATIENT
  Age: 59 Year
  Sex: Female
  Weight: 56.6 kg

DRUGS (2)
  1. THALOMID [Suspect]
     Indication: MALIGNANT MELANOMA
     Dosage: 200 MG, DAILY, ORAL
     Route: 048
     Dates: start: 20041025, end: 20041027
  2. TEMOZOLOMIDE (TEMOZOLOMIDE) [Suspect]
     Indication: MALIGNANT MELANOMA
     Dosage: 75 MG/M2, DAILY FOR 6 WEEKS, EVERY 8 WEKS, ORAL)
     Route: 048
     Dates: start: 20041025, end: 20041027

REACTIONS (5)
  - DEHYDRATION [None]
  - HEADACHE [None]
  - NAUSEA [None]
  - OEDEMA [None]
  - VOMITING [None]
